FAERS Safety Report 11779238 (Version 6)
Quarter: 2016Q2

REPORT INFORMATION
  Report Type: Spontaneous
  Country: US (occurrence: US)
  Receive Date: 20151125
  Receipt Date: 20160620
  Transmission Date: 20160815
  Serious: Yes (Hospitalization, Other)
  Sender: FDA-Public Use
  Company Number: US-PFIZER INC-2015388285

PATIENT
  Age: 81 Year
  Sex: Female
  Weight: 71.2 kg

DRUGS (4)
  1. INLYTA [Suspect]
     Active Substance: AXITINIB
     Dosage: 5 MG, 2X/DAY
     Route: 048
     Dates: start: 20150928, end: 201603
  2. INLYTA [Suspect]
     Active Substance: AXITINIB
     Indication: MALIGNANT NEOPLASM OF RENAL PELVIS
     Dosage: 5 MG, 2X/DAY
     Route: 048
     Dates: start: 20150610
  3. INLYTA [Suspect]
     Active Substance: AXITINIB
     Dosage: UNK
     Route: 048
     Dates: start: 2016
  4. INLYTA [Suspect]
     Active Substance: AXITINIB
     Dosage: 5 MG, 2X/DAY
     Route: 048
     Dates: start: 20150928, end: 201603

REACTIONS (11)
  - Abdominal discomfort [Unknown]
  - Dementia [Unknown]
  - Dysphonia [Unknown]
  - Uterine prolapse [Unknown]
  - Diarrhoea [Unknown]
  - Arthritis [Unknown]
  - Agitation [Unknown]
  - Electrolyte depletion [Unknown]
  - Insomnia [Unknown]
  - Urinary tract infection [Unknown]
  - Dehydration [Unknown]

NARRATIVE: CASE EVENT DATE: 201512
